FAERS Safety Report 8984673 (Version 1)
Quarter: 2012Q4

REPORT INFORMATION
  Report Type: 
  Country: US (occurrence: US)
  Receive Date: 20121226
  Receipt Date: 20121226
  Transmission Date: 20130627
  Serious: Yes (Hospitalization)
  Sender: FDA-Public Use
  Company Number: US-BAYER-2012-133419

PATIENT
  Age: 42 Year
  Sex: Female
  Weight: 67.12 kg

DRUGS (20)
  1. OCELLA [Suspect]
     Dosage: UNK
     Dates: start: 20090915, end: 20100109
  2. OCELLA [Suspect]
     Dosage: UNK
     Dates: start: 20120407, end: 20120411
  3. ZARAH [Suspect]
     Dosage: UNK
     Dates: start: 20110709, end: 20110926
  4. CIPROFLOXACIN [Concomitant]
     Dosage: 500 mg, UNK
     Route: 048
  5. PHENAZOPYRIDINE [Concomitant]
  6. BENADRYL [Concomitant]
     Indication: ALLERGIC REACTION
     Dosage: 50 mg, UNK
     Route: 042
  7. BENADRYL [Concomitant]
     Indication: ALLERGIC REACTION
     Dosage: 25 mg, UNK
  8. SOLUMEDROL [Concomitant]
     Indication: ALLERGIC REACTION
     Dosage: 125 mg, UNK
     Route: 042
  9. TORADOL [Concomitant]
     Dosage: 30 mg, UNK
     Route: 042
  10. BACTRIM DS [Concomitant]
     Indication: URINARY TRACT INFECTION
     Dosage: 800 mg - 160 mg
     Route: 048
  11. PREDNISONE [Concomitant]
     Indication: ALLERGIC REACTION
     Dosage: 20 mg, UNK
     Route: 048
  12. LUNESTA [Concomitant]
     Dosage: 3 mg, UNK
     Route: 048
  13. RANITIDINE [Concomitant]
     Dosage: 150 mg, UNK
     Route: 048
  14. LISINOPRIL [Concomitant]
     Dosage: 5 mg, UNK
     Route: 048
  15. ATIVAN [Concomitant]
     Dosage: 1 mg, UNK
     Route: 048
  16. PAXIL [Concomitant]
     Dosage: 25 mg, UNK
     Route: 048
  17. DOXYCYCLINE [Concomitant]
     Dosage: 100 mg, UNK
     Route: 048
  18. PERCOCET [Concomitant]
     Dosage: 5 - 325 mg
     Route: 048
  19. XANAX [Concomitant]
     Indication: INSOMNIA
     Dosage: UNK UNK, BID, day and night
  20. MULTIVITAMIN [Concomitant]

REACTIONS (2)
  - Pelvic venous thrombosis [None]
  - Deep vein thrombosis [None]
